FAERS Safety Report 6603157-7 (Version None)
Quarter: 2010Q1

REPORT INFORMATION
  Report Type: 
  Country: None (occurrence: None)
  Receive Date: 20100218
  Receipt Date: 20100203
  Transmission Date: 20100710
  Serious: Yes (Hospitalization)
  Sender: FDA-Public Use
  Company Number: 1000011811

PATIENT
  Age: 60 Year
  Sex: Male

DRUGS (4)
  1. ESCITALOPRAM [Suspect]
     Dosage: 5 MG (5 MG, 1 IN 1 D), ORAL
     Route: 048
  2. ZANIDIP [Concomitant]
  3. ZESTRIL [Concomitant]
  4. BISOPROLOL FUMARATE [Concomitant]

REACTIONS (2)
  - HYDRONEPHROSIS [None]
  - URINARY RETENTION [None]
